FAERS Safety Report 8236403-7 (Version None)
Quarter: 2012Q1

REPORT INFORMATION
  Report Type: 
  Country: None (occurrence: None)
  Receive Date: 20120326
  Receipt Date: 20120326
  Transmission Date: 20120608
  Serious: Yes (Hospitalization)
  Sender: FDA-Public Use
  Company Number: None

PATIENT
  Age: 63 Year
  Sex: Male

DRUGS (1)
  1. INSULIN [Suspect]
     Dosage: 20 UNITS
     Dates: start: 20120309

REACTIONS (7)
  - ALCOHOL ABUSE [None]
  - PRESYNCOPE [None]
  - DEPRESSED LEVEL OF CONSCIOUSNESS [None]
  - HYPERGLYCAEMIA [None]
  - TREMOR [None]
  - TREATMENT NONCOMPLIANCE [None]
  - HYPOGLYCAEMIA [None]
